FAERS Safety Report 8859472 (Version 1)
Quarter: 2012Q4

REPORT INFORMATION
  Report Type: Spontaneous
  Country: DK (occurrence: None)
  Receive Date: 20121023
  Receipt Date: 20121023
  Transmission Date: 20130627
  Serious: Yes (Life-Threatening, Hospitalization)
  Sender: FDA-Public Use
  Company Number: 2012MA012480

PATIENT
  Age: 68 Year
  Sex: Female

DRUGS (1)
  1. GEMCITABINE HYDROCHLORIDE [Suspect]
     Indication: PANCREATIC CANCER
     Route: 042
     Dates: start: 20120202, end: 20120726

REACTIONS (8)
  - Acute pulmonary oedema [None]
  - Pericarditis [None]
  - Pleural effusion [None]
  - Respiratory distress [None]
  - Generalised oedema [None]
  - Pericardial effusion [None]
  - Hyperhidrosis [None]
  - Hypertension [None]
